FAERS Safety Report 5003216-9 (Version None)
Quarter: 2006Q2

REPORT INFORMATION
  Report Type: 
  Country: None (occurrence: None)
  Receive Date: 20060510
  Receipt Date: 20060427
  Transmission Date: 20061013
  Serious: Yes (Death)
  Sender: FDA-Public Use
  Company Number: 2006057688

PATIENT

DRUGS (1)
  1. ATORVASTATIN CALCIUM [Suspect]
     Indication: LOW DENSITY LIPOPROTEIN
     Dosage: 10 MG (1 IN 1 D)

REACTIONS (1)
  - ACUTE MYOCARDIAL INFARCTION [None]
